FAERS Safety Report 13338751 (Version 2)
Quarter: 2019Q4

REPORT INFORMATION
  Report Type: Spontaneous
  Country: US (occurrence: US)
  Receive Date: 20170315
  Receipt Date: 20191030
  Transmission Date: 20200122
  Serious: Yes (Other)
  Sender: FDA-Public Use
  Company Number: US-PFIZER INC-2017113377

PATIENT
  Age: 67 Year
  Sex: Male

DRUGS (3)
  1. VIAGRA [Suspect]
     Active Substance: SILDENAFIL CITRATE
     Indication: ERECTILE DYSFUNCTION
     Dosage: 50 MG, (ONCE A WEEK)
     Route: 048
     Dates: start: 20101202, end: 20110719
  2. VIAGRA [Suspect]
     Active Substance: SILDENAFIL CITRATE
     Dosage: UNK
     Route: 048
     Dates: start: 201012, end: 201311
  3. VIAGRA [Suspect]
     Active Substance: SILDENAFIL CITRATE
     Dosage: 50 MG, (ONCE A WEEK)
     Route: 048
     Dates: start: 20130904, end: 20131102

REACTIONS (2)
  - Malignant melanoma in situ [Unknown]
  - Malignant melanoma [Unknown]

NARRATIVE: CASE EVENT DATE: 20130418
